FAERS Safety Report 7322951-0 (Version None)
Quarter: 2011Q1

REPORT INFORMATION
  Report Type: 
  Country: None (occurrence: None)
  Receive Date: 20110301
  Receipt Date: 20110217
  Transmission Date: 20110831
  Serious: Yes (Disabling, Other)
  Sender: FDA-Public Use
  Company Number: PHFR2011GB01019

PATIENT
  Sex: Male
  Weight: 71 kg

DRUGS (2)
  1. CLOZARIL [Suspect]
     Indication: SCHIZOPHRENIA
     Dosage: 75 MG, BID
     Route: 048
     Dates: start: 20101206
  2. VALPROATE SODIUM [Concomitant]
     Dosage: 750 MG, BID
     Route: 048
     Dates: start: 20101214

REACTIONS (3)
  - ABDOMINAL PAIN [None]
  - CONSTIPATION [None]
  - DIARRHOEA [None]
